FAERS Safety Report 8973962 (Version 1)
Quarter: 2012Q4

REPORT INFORMATION
  Report Type: 
  Country: US (occurrence: US)
  Receive Date: 20121218
  Receipt Date: 20121218
  Transmission Date: 20130627
  Serious: No
  Sender: FDA-Public Use
  Company Number: US-BRISTOL-MYERS SQUIBB COMPANY-16392763

PATIENT
  Age: 57 Year
  Sex: Male
  Weight: 69.39 kg

DRUGS (4)
  1. ABILIFY [Suspect]
     Indication: ANXIETY
     Dosage: 5mg pills splited and taken in morning
  2. ABILIFY [Suspect]
     Indication: DEPRESSION
     Dosage: 5mg pills splited and taken in morning
  3. PAXIL [Suspect]
     Indication: DEPRESSION
  4. PAXIL [Suspect]
     Indication: ANXIETY

REACTIONS (3)
  - Insomnia [Unknown]
  - Nervousness [Recovered/Resolved]
  - Dyskinesia [Recovered/Resolved]
